FAERS Safety Report 7308780-2 (Version None)
Quarter: 2011Q1

REPORT INFORMATION
  Report Type: 
  Country: None (occurrence: None)
  Receive Date: 20110211
  Receipt Date: 20110202
  Transmission Date: 20110831
  Serious: Yes (Death, Hospitalization)
  Sender: FDA-Public Use
  Company Number: 1000018710

PATIENT
  Sex: Female

DRUGS (2)
  1. ARICEPT [Concomitant]
  2. MEMANTINE HYDROCHLORIDE [Suspect]
     Dates: start: 20090901

REACTIONS (1)
  - PANCREATITIS [None]
